FAERS Safety Report 8800207 (Version 2)
Quarter: 2012Q4

REPORT INFORMATION
  Report Type: Report from Study
  Country: JP (occurrence: JP)
  Receive Date: 20120921
  Receipt Date: 20121019
  Transmission Date: 20130627
  Serious: Yes (Other)
  Sender: FDA-Public Use
  Company Number: JP-JNJFOC-20120906795

PATIENT
  Age: 68 Year
  Sex: Male
  Weight: 79 kg

DRUGS (8)
  1. STELARA [Suspect]
     Indication: PSORIASIS
     Route: 058
     Dates: start: 20120202
  2. STELARA [Suspect]
     Indication: PSORIASIS
     Route: 058
     Dates: start: 20120229
  3. STELARA [Suspect]
     Indication: PSORIASIS
     Route: 058
     Dates: start: 20120321
  4. STELARA [Suspect]
     Indication: PSORIASIS
     Route: 058
     Dates: start: 20120808
  5. ZYRTEC [Concomitant]
     Indication: PSORIASIS
     Route: 048
  6. TALION [Concomitant]
     Indication: PSORIASIS
     Route: 048
  7. DIFLAL [Concomitant]
     Indication: PSORIASIS
  8. OXAROL [Concomitant]
     Indication: PSORIASIS

REACTIONS (1)
  - Glaucoma [Not Recovered/Not Resolved]
